FAERS Safety Report 6168618-6 (Version None)
Quarter: 2009Q2

REPORT INFORMATION
  Report Type: 
  Country: None (occurrence: None)
  Receive Date: 20090424
  Receipt Date: 20090424
  Transmission Date: 20091009
  Serious: Yes (Other)
  Sender: FDA-Public Use
  Company Number: None

PATIENT
  Sex: Male
  Weight: 34.0198 kg

DRUGS (1)
  1. SINGULAIR [Suspect]
     Indication: SEASONAL ALLERGY
     Dosage: 5 MG ONCE DAILY PO
     Route: 048
     Dates: start: 20020315, end: 20090420

REACTIONS (3)
  - AGGRESSION [None]
  - DEPRESSION [None]
  - MOOD ALTERED [None]
